FAERS Safety Report 4732244-3 (Version None)
Quarter: 2005Q3

REPORT INFORMATION
  Report Type: 
  Country: None (occurrence: None)
  Receive Date: 20050726
  Receipt Date: 20041202
  Transmission Date: 20060218
  Serious: Yes (Death, Life-Threatening, Hospitalization)
  Sender: FDA-Public Use
  Company Number: 04FRA0253

PATIENT
  Age: 78 Year
  Sex: Male

DRUGS (7)
  1. AGGRASTAT [Suspect]
     Indication: MYOCARDIAL INFARCTION
     Dates: start: 20040920, end: 20040922
  2. ASPIRIN LYSINE (ACETYLSALICYLIC LYSINE) [Suspect]
     Indication: THROMBOSIS PROPHYLAXIS
     Dosage: 160MG QD
     Dates: start: 20040920, end: 20040922
  3. CLOPIDOGREL BISULFATE [Suspect]
     Indication: THROMBOSIS PROPHYLAXIS
     Dates: start: 20040920, end: 20040922
  4. NORVASC [Concomitant]
  5. ENOXAPARIN SODIUM [Concomitant]
  6. FUROSEMIDE (FUROSEMIDE) [Concomitant]
  7. INSULIN [Concomitant]

REACTIONS (1)
  - GASTROINTESTINAL HAEMORRHAGE [None]
